FAERS Safety Report 5843238-9 (Version None)
Quarter: 2008Q3

REPORT INFORMATION
  Report Type: 
  Country: None (occurrence: None)
  Receive Date: 20080813
  Receipt Date: 20080806
  Transmission Date: 20090109
  Serious: Yes (Hospitalization)
  Sender: FDA-Public Use
  Company Number: PHHY2008JP07798

PATIENT
  Weight: 50 kg

DRUGS (9)
  1. TEGRETOL [Suspect]
     Indication: TRIGEMINAL NEURALGIA
     Dosage: 100 MG 3 TIMES DAILY
     Route: 048
  2. LAXOBERON [Interacting]
     Indication: CONSTIPATION
     Dosage: 0.67 ML
     Route: 048
     Dates: start: 20080422, end: 20080422
  3. BLOPRESS [Concomitant]
     Indication: HYPERTENSION
     Dosage: 8MG
     Route: 048
     Dates: start: 20031107
  4. AMLODIPINE BESYLATE [Concomitant]
     Indication: HYPERTENSION
     Dosage: 2.5MG
     Route: 048
     Dates: start: 20031107
  5. ONON [Concomitant]
     Indication: ASTHMA
     Dosage: 250MG
     Route: 048
     Dates: start: 20031107
  6. GASTER D [Concomitant]
     Indication: GASTRIC ULCER
     Dosage: 20MG
     Route: 048
     Dates: start: 20031107
  7. ALOSENN [Concomitant]
     Indication: CONSTIPATION
     Dosage: 1G
     Route: 048
     Dates: start: 20031107
  8. GATIFLOXACIN [Concomitant]
     Indication: BRONCHITIS
     Dosage: 400MG
     Route: 048
     Dates: start: 20080421
  9. PREDNISOLON [Concomitant]
     Indication: ASTHMA
     Dosage: 15MG
     Route: 048
     Dates: start: 20080421

REACTIONS (2)
  - ASTHMA [None]
  - THERAPEUTIC RESPONSE DECREASED [None]
